FAERS Safety Report 9834470 (Version 2)
Quarter: 2014Q1

REPORT INFORMATION
  Report Type: Report from Study
  Country: FR (occurrence: FR)
  Receive Date: 20140122
  Receipt Date: 20140122
  Transmission Date: 20141002
  Serious: Yes (Hospitalization, Other)
  Sender: FDA-Public Use
  Company Number: FR-TEVA-383878USA

PATIENT
  Age: 60 Year
  Sex: Male
  Weight: 93 kg

DRUGS (18)
  1. BENDAMUSTINE [Suspect]
     Indication: B-CELL SMALL LYMPHOCYTIC LYMPHOMA
     Route: 042
     Dates: start: 20120919, end: 20130110
  2. BENDAMUSTINE [Suspect]
     Route: 042
     Dates: start: 20121015
  3. BENDAMUSTINE [Suspect]
     Route: 042
     Dates: start: 20121112
  4. BENDAMUSTINE [Suspect]
     Route: 042
     Dates: start: 20121210
  5. BENDAMUSTINE [Suspect]
     Route: 042
     Dates: start: 20130108
  6. METHYLPREDNISOLONE [Suspect]
     Indication: B-CELL SMALL LYMPHOCYTIC LYMPHOMA
     Route: 042
     Dates: start: 20120910, end: 20120910
  7. METHYLPREDNISOLONE [Suspect]
     Dosage: DAY 15
     Route: 042
     Dates: start: 20121015, end: 20130108
  8. ARZERRA (OFATUMUMAB) [Suspect]
     Indication: B-CELL SMALL LYMPHOCYTIC LYMPHOMA
     Route: 042
     Dates: start: 20120910, end: 20120910
  9. ARZERRA (OFATUMUMAB) [Suspect]
     Route: 042
     Dates: start: 20120918, end: 20130108
  10. ARZERRA (OFATUMUMAB) [Suspect]
     Route: 042
     Dates: start: 20121112, end: 20130108
  11. DIVARIUS [Concomitant]
  12. ZELITREX [Concomitant]
  13. TIORFAN [Concomitant]
  14. PRIMPERAN [Concomitant]
  15. FOLINORAL [Concomitant]
  16. CACIT D3 [Concomitant]
  17. BACTRIM [Concomitant]
  18. TOPALGIC [Concomitant]

REACTIONS (5)
  - Atrial fibrillation [Recovered/Resolved]
  - Pyrexia [Recovered/Resolved]
  - Immunosuppression [Recovered/Resolved]
  - Chest pain [Recovered/Resolved]
  - Bone marrow failure [Unknown]
